FAERS Safety Report 16376587 (Version 1)
Quarter: 2019Q2

REPORT INFORMATION
  Report Type: Report from Study
  Country: None (occurrence: AU)
  Receive Date: 20190531
  Receipt Date: 20190531
  Transmission Date: 20190711
  Serious: Yes (Hospitalization)
  Sender: FDA-Public Use
  Company Number: AU-ABBVIE-19S-008-2798945-00

PATIENT
  Sex: Female

DRUGS (1)
  1. DUODOPA [Suspect]
     Active Substance: CARBIDOPA\LEVODOPA
     Indication: PARKINSON^S DISEASE
     Dosage: 100ML GEL CASSETTE; 16HRLY INFUSION
     Route: 050
     Dates: start: 20190321

REACTIONS (4)
  - Tachypnoea [Not Recovered/Not Resolved]
  - Enteral nutrition [Unknown]
  - Hypotension [Not Recovered/Not Resolved]
  - Intentional medical device removal by patient [Unknown]
